FAERS Safety Report 14056995 (Version 1)
Quarter: 2017Q4

REPORT INFORMATION
  Report Type: Spontaneous
  Country: FR (occurrence: FR)
  Receive Date: 20171006
  Receipt Date: 20171006
  Transmission Date: 20180321
  Serious: Yes (Disabling)
  Sender: FDA-Public Use
  Company Number: FR-009507513-1709FRA014633

PATIENT
  Age: 51 Year
  Sex: Female

DRUGS (4)
  1. TERCIAN [Concomitant]
     Active Substance: CYAMEMAZINE
     Indication: MENTAL DISORDER
     Dosage: 25 MG 2 TABLETS AT THE EVENING
     Route: 048
  2. NORSET [Suspect]
     Active Substance: MIRTAZAPINE
     Dosage: 1 TABLET AT THE EVENING
     Route: 048
     Dates: start: 20170924
  3. EFFEXOR [Concomitant]
     Active Substance: VENLAFAXINE HYDROCHLORIDE
     Indication: MENTAL DISORDER
     Dosage: 2 TABLETS EVERY MORNING
     Route: 048
  4. DIPIPERON [Concomitant]
     Active Substance: PIPAMPERONE
     Indication: MENTAL DISORDER
     Dosage: 40 MG 1 TABLET AT EVENING
     Route: 048

REACTIONS (3)
  - Dizziness [Unknown]
  - Somnolence [Unknown]
  - Loss of personal independence in daily activities [Unknown]

NARRATIVE: CASE EVENT DATE: 20170925
